FAERS Safety Report 12182644 (Version 1)
Quarter: 2016Q1

REPORT INFORMATION
  Report Type: Spontaneous
  Country: US (occurrence: None)
  Receive Date: 20160315
  Receipt Date: 20160315
  Transmission Date: 20160526
  Serious: Yes (Hospitalization)
  Sender: FDA-Public Use
  Company Number: None

PATIENT
  Age: 44 Year
  Sex: Female
  Weight: 58 kg

DRUGS (40)
  1. CARVEDILOL. [Concomitant]
     Active Substance: CARVEDILOL
  2. LINEZOLID. [Concomitant]
     Active Substance: LINEZOLID
  3. TOBRAMYCIN. [Concomitant]
     Active Substance: TOBRAMYCIN
  4. DOXYCYCLINE. [Concomitant]
     Active Substance: DOXYCYCLINE
  5. GABAPENTIN. [Concomitant]
     Active Substance: GABAPENTIN
  6. AMPICILLIN-SULBACTAM [Concomitant]
  7. PIP-TAZO [Concomitant]
  8. VANCOMYCIN [Concomitant]
     Active Substance: VANCOMYCIN
  9. METOCLOPRAMIDE. [Concomitant]
     Active Substance: METOCLOPRAMIDE
  10. LINEZOLID. [Concomitant]
     Active Substance: LINEZOLID
  11. CEFTRIAXONE. [Concomitant]
     Active Substance: CEFTRIAXONE
  12. PANTOPRAZOL [Concomitant]
     Active Substance: PANTOPRAZOLE SODIUM
  13. LISINOPRIL. [Concomitant]
     Active Substance: LISINOPRIL
  14. IV HYDRALAZINE [Concomitant]
  15. ASPIRIN. [Concomitant]
     Active Substance: ASPIRIN
  16. GABAPENTIN. [Concomitant]
     Active Substance: GABAPENTIN
  17. VANCOMYCIN [Concomitant]
     Active Substance: VANCOMYCIN
  18. ACETAMINOPHEN. [Concomitant]
     Active Substance: ACETAMINOPHEN
  19. BETHANECHOL 25 MG UPSHER SMITH [Suspect]
     Active Substance: BETHANECHOL
     Indication: URINARY RETENTION
     Route: 048
     Dates: start: 20160224, end: 20160301
  20. LISINOPRIL. [Concomitant]
     Active Substance: LISINOPRIL
  21. ASPIRIN. [Concomitant]
     Active Substance: ASPIRIN
  22. METRONIDAZOLE. [Concomitant]
     Active Substance: METRONIDAZOLE
  23. MORPHINE [Concomitant]
     Active Substance: MORPHINE
  24. DUONEBS [Concomitant]
  25. DIPHENHYDRAMINE. [Concomitant]
     Active Substance: DIPHENHYDRAMINE
  26. NORCO [Concomitant]
     Active Substance: ACETAMINOPHEN\HYDROCODONE BITARTRATE
  27. ALBUTEROL INHALER [Concomitant]
     Active Substance: ALBUTEROL
  28. BETHANECHOL [Concomitant]
     Active Substance: BETHANECHOL
  29. HEPARIN [Concomitant]
     Active Substance: HEPARIN SODIUM
  30. CARVEDILOL. [Concomitant]
     Active Substance: CARVEDILOL
  31. NOVOLOG INSULIN [Concomitant]
  32. NORCO [Concomitant]
     Active Substance: ACETAMINOPHEN\HYDROCODONE BITARTRATE
  33. SITAGLIPTAN [Concomitant]
     Active Substance: SITAGLIPTIN
  34. ONDANSETRON [Concomitant]
     Active Substance: ONDANSETRON
  35. AMOXICILLIN. [Concomitant]
     Active Substance: AMOXICILLIN
  36. BETHANECHOL [Concomitant]
     Active Substance: BETHANECHOL
  37. LORATADINE. [Concomitant]
     Active Substance: LORATADINE
  38. OMEPRAZOLE. [Concomitant]
     Active Substance: OMEPRAZOLE
  39. HYDROMORPHONE [Concomitant]
     Active Substance: HYDROMORPHONE
  40. EPOETIN ALPHA [Concomitant]

REACTIONS (7)
  - Hypothermia [None]
  - Hyperhidrosis [None]
  - Bradycardia [None]
  - Cholinergic syndrome [None]
  - Nausea [None]
  - Abdominal pain [None]
  - Diarrhoea [None]

NARRATIVE: CASE EVENT DATE: 20160301
